FAERS Safety Report 22094223 (Version 1)
Quarter: 2023Q1

REPORT INFORMATION
  Report Type: Spontaneous
  Country: US (occurrence: None)
  Receive Date: 20230314
  Receipt Date: 20230314
  Transmission Date: 20230417
  Serious: Yes (Hospitalization)
  Sender: FDA-Public Use
  Company Number: None

PATIENT
  Sex: 0

DRUGS (1)
  1. SANCUSO [Suspect]
     Active Substance: GRANISETRON
     Dosage: OTHER FREQUENCY : 24H BEFORE CHEMO;?
     Route: 062
     Dates: start: 20220923

REACTIONS (1)
  - Hospitalisation [None]

NARRATIVE: CASE EVENT DATE: 20230313
